FAERS Safety Report 7640717-9 (Version None)
Quarter: 2011Q3

REPORT INFORMATION
  Report Type: 
  Country: None (occurrence: None)
  Receive Date: 20110721
  Receipt Date: 20110707
  Transmission Date: 20111222
  Serious: Yes (Hospitalization)
  Sender: FDA-Public Use
  Company Number: US-005429

PATIENT
  Sex: Female

DRUGS (1)
  1. TRANEXAMIC ACID [Suspect]
     Dosage: (ORAL)
     Route: 048
     Dates: start: 20100101

REACTIONS (4)
  - FALL [None]
  - MEMORY IMPAIRMENT [None]
  - LOWER LIMB FRACTURE [None]
  - ANKLE FRACTURE [None]
